FAERS Safety Report 7190274-9 (Version None)
Quarter: 2010Q4

REPORT INFORMATION
  Report Type: 
  Country: None (occurrence: None)
  Receive Date: 20101213
  Receipt Date: 20101202
  Transmission Date: 20110411
  Serious: Yes (Hospitalization, Other)
  Sender: FDA-Public Use
  Company Number: 2009SP021087

PATIENT
  Age: 23 Year
  Sex: Female
  Weight: 49.8957 kg

DRUGS (2)
  1. NUVARING [Suspect]
     Indication: PRODUCT USED FOR UNKNOWN INDICATION
     Dosage: VAG
     Route: 067
     Dates: start: 20050315, end: 20051001
  2. ALBUTEROL [Concomitant]

REACTIONS (11)
  - ARTERIAL THROMBOSIS LIMB [None]
  - CERVICAL DYSPLASIA [None]
  - COLLATERAL CIRCULATION [None]
  - FEAR OF DEATH [None]
  - INSOMNIA [None]
  - LYMPHATIC DUCT INJURY [None]
  - PAPILLOMA VIRAL INFECTION [None]
  - PERIPHERAL ISCHAEMIA [None]
  - POST PROCEDURAL FISTULA [None]
  - TENDONITIS [None]
  - URINARY TRACT INFECTION [None]
